FAERS Safety Report 5157435-1 (Version None)
Quarter: 2006Q4

REPORT INFORMATION
  Report Type: 
  Country: None (occurrence: None)
  Receive Date: 20061116
  Receipt Date: 20060619
  Transmission Date: 20070319
  Serious: No
  Sender: FDA-Public Use
  Company Number: IND-AE-06-DEL-003

PATIENT
  Sex: Male
  Weight: 83.9154 kg

DRUGS (2)
  1. DELATESTRYL [Suspect]
     Indication: TESTICULAR FAILURE
     Dosage: 200MG Q 3-4 WKS - IM
     Route: 030
  2. CONCERTA [Concomitant]

REACTIONS (1)
  - ALOPECIA [None]
